FAERS Safety Report 4934105-3 (Version None)
Quarter: 2006Q1

REPORT INFORMATION
  Report Type: 
  Country: None (occurrence: None)
  Receive Date: 20060303
  Receipt Date: 20060223
  Transmission Date: 20060701
  Serious: Yes (Other)
  Sender: FDA-Public Use
  Company Number: 2006027653

PATIENT

DRUGS (2)
  1. ZYRTEC [Suspect]
     Indication: ILL-DEFINED DISORDER
  2. AUGMENTIN '125' [Concomitant]

REACTIONS (2)
  - DIPLOPIA [None]
  - VISION BLURRED [None]
